FAERS Safety Report 10879015 (Version 3)
Quarter: 2015Q3

REPORT INFORMATION
  Report Type: Report from Study
  Country: US (occurrence: US)
  Receive Date: 20150302
  Receipt Date: 20150702
  Transmission Date: 20151125
  Serious: Yes (Hospitalization, Other)
  Sender: FDA-Public Use
  Company Number: US-EXELIXIS-CABO 14004068

PATIENT
  Age: 22 Year
  Sex: Female
  Weight: 56 kg

DRUGS (7)
  1. OLANZAPINE. [Concomitant]
     Active Substance: OLANZAPINE
  2. GUAIPHENESIN [Concomitant]
  3. REGLAN [Concomitant]
     Active Substance: METOCLOPRAMIDE HYDROCHLORIDE
  4. ADVAIR HFA [Concomitant]
     Active Substance: FLUTICASONE PROPIONATE\SALMETEROL XINAFOATE
  5. OXYCONTIN [Concomitant]
     Active Substance: OXYCODONE HYDROCHLORIDE
  6. OXYCODONE [Concomitant]
     Active Substance: OXYCODONE
  7. CABOZANTINIB [Suspect]
     Active Substance: CABOZANTINIB
     Indication: RENAL CANCER
     Dosage: 60 MG, QD
     Route: 048
     Dates: start: 20140201

REACTIONS (18)
  - Localised infection [Unknown]
  - Pigmentation disorder [Unknown]
  - Hair colour changes [Unknown]
  - Metastases to lung [Unknown]
  - Skin exfoliation [Unknown]
  - Vomiting [Recovering/Resolving]
  - Pleural effusion [Unknown]
  - Ovarian neoplasm [Unknown]
  - Skin disorder [Unknown]
  - Fatigue [Unknown]
  - Hyperkeratosis [Unknown]
  - Off label use [Unknown]
  - Blister [Recovering/Resolving]
  - Pain in extremity [Unknown]
  - Acne [Unknown]
  - Nausea [Recovering/Resolving]
  - Somnolence [Unknown]
  - Dyspnoea [Unknown]

NARRATIVE: CASE EVENT DATE: 2014
